FAERS Safety Report 9542694 (Version 1)
Quarter: 2013Q3

REPORT INFORMATION
  Report Type: Spontaneous
  Country: US (occurrence: US)
  Receive Date: 20130923
  Receipt Date: 20130923
  Transmission Date: 20140515
  Serious: Yes (Hospitalization, Other)
  Sender: FDA-Public Use
  Company Number: US-ELI_LILLY_AND_COMPANY-US201309005452

PATIENT
  Sex: Female

DRUGS (2)
  1. HUMALOG LISPRO [Suspect]
     Indication: TYPE 2 DIABETES MELLITUS
     Dosage: UNK, PRN
     Dates: start: 201307
  2. LANTUS [Concomitant]

REACTIONS (4)
  - Craniocerebral injury [Unknown]
  - Concussion [Unknown]
  - Fall [Unknown]
  - Asthenia [Unknown]
